FAERS Safety Report 11309646 (Version 4)
Quarter: 2015Q4

REPORT INFORMATION
  Report Type: Spontaneous
  Country: JP (occurrence: JP)
  Receive Date: 20150724
  Receipt Date: 20151006
  Transmission Date: 20160304
  Serious: Yes (Life-Threatening)
  Sender: FDA-Public Use
  Company Number: JP-SA-2015SA106683

PATIENT
  Age: 66 Year
  Sex: Male
  Weight: 52 kg

DRUGS (18)
  1. NASIROBIN [Concomitant]
     Dates: start: 20150526, end: 20150707
  2. FAMOTIDINE. [Concomitant]
     Active Substance: FAMOTIDINE
     Dates: start: 20150526, end: 20150707
  3. ELPLAT [Suspect]
     Active Substance: OXALIPLATIN
     Indication: RECTAL CANCER
     Route: 041
     Dates: start: 20150623, end: 20150623
  4. MINOCYCLINE\MINOCYCLINE HYDROCHLORIDE [Concomitant]
     Active Substance: MINOCYCLINE\MINOCYCLINE HYDROCHLORIDE
     Dates: start: 20150526, end: 20150707
  5. MINERALS NOS/VITAMINS NOS [Concomitant]
     Dosage: FORM: POWDER
     Dates: start: 20150526
  6. ELPLAT [Suspect]
     Active Substance: OXALIPLATIN
     Indication: RECTAL CANCER
     Route: 041
     Dates: start: 20150609, end: 20150609
  7. GRANISETRON [Concomitant]
     Active Substance: GRANISETRON
     Dates: start: 20150526, end: 20150707
  8. ANTEBATE [Concomitant]
     Active Substance: BETAMETHASONE DIPROPIONATE
     Dates: start: 20150526
  9. ELPLAT [Suspect]
     Active Substance: OXALIPLATIN
     Indication: RECTAL CANCER
     Route: 041
     Dates: start: 20150526, end: 20150526
  10. RESTAMIN [Concomitant]
     Active Substance: DIPHENHYDRAMINE
     Dates: start: 20150526, end: 20150707
  11. DEXART [Concomitant]
     Active Substance: DEXAMETHASONE SODIUM PHOSPHATE
     Dates: start: 20150526, end: 20150707
  12. DIFLAL [Concomitant]
     Dates: start: 20150526
  13. ELPLAT [Suspect]
     Active Substance: OXALIPLATIN
     Indication: RECTAL CANCER
     Route: 041
     Dates: start: 20150707, end: 20150707
  14. LEVOFOLINATE [Concomitant]
     Active Substance: LEVOLEUCOVORIN CALCIUM
     Route: 065
     Dates: start: 20150526, end: 20150707
  15. ERBITUX [Concomitant]
     Active Substance: CETUXIMAB
     Route: 065
     Dates: start: 20150526, end: 20150707
  16. 5-FU [Concomitant]
     Active Substance: FLUOROURACIL
     Dosage: 610 MG/BODY (399.7 MG/M2) BOLUS THEN 3662 MG/BODY/D1-2 (2399.7 MG/M2/D1-2) AS CONTINOUS INFUSION
     Dates: start: 20150623, end: 20150707
  17. FEXOFENADINE HYDROCHLORIDE. [Concomitant]
     Active Substance: FEXOFENADINE HYDROCHLORIDE
     Dates: start: 20150602, end: 20150707
  18. CINAL [Concomitant]
     Active Substance: ASCORBIC ACID\CALCIUM PANTOTHENATE
     Dates: start: 20150526

REACTIONS (6)
  - Haematuria [Recovered/Resolved]
  - Renal impairment [Recovering/Resolving]
  - Myalgia [Recovered/Resolved]
  - Rhabdomyolysis [Recovered/Resolved]
  - Hyperbilirubinaemia [Recovered/Resolved]
  - Hepatic function abnormal [Recovered/Resolved]

NARRATIVE: CASE EVENT DATE: 20150623
